FAERS Safety Report 8548788-2 (Version None)
Quarter: 2012Q3

REPORT INFORMATION
  Report Type: 
  Country: None (occurrence: None)
  Receive Date: 20120730
  Receipt Date: 20120720
  Transmission Date: 20120928
  Serious: Yes (Death, Hospitalization)
  Sender: FDA-Public Use
  Company Number: JP-BRISTOL-MYERS SQUIBB COMPANY-16618373

PATIENT
  Age: 76 Year
  Sex: Male
  Weight: 57 kg

DRUGS (15)
  1. MAGLAX [Concomitant]
  2. CLARITIN [Concomitant]
  3. ACECOL [Concomitant]
  4. DEXAMETHASONE SODIUM PHOSPHATE [Concomitant]
     Dosage: INJ
  5. PURSENNID [Concomitant]
  6. PRAVASTATIN [Concomitant]
  7. IRINOTECAN HCL [Suspect]
     Indication: COLORECTAL CANCER RECURRENT
  8. LEUCOVORIN CALCIUM [Concomitant]
     Indication: COLORECTAL CANCER RECURRENT
     Route: 042
  9. MUCOSTA [Concomitant]
  10. RESTAMIN [Concomitant]
     Dosage: TAB
     Route: 048
  11. FUROSEMIDE [Concomitant]
  12. DEPAS [Concomitant]
  13. RABEPRAZOLE SODIUM [Concomitant]
  14. FLUOROURACIL [Concomitant]
     Indication: COLORECTAL CANCER RECURRENT
     Route: 042
  15. ERBITUX [Suspect]
     Indication: COLORECTAL CANCER RECURRENT
     Dosage: 250MG/M2:UNK 300MG/M2:JAN12-STOPPED
     Route: 042
     Dates: start: 20110101

REACTIONS (2)
  - LUNG DISORDER [None]
  - SKIN DISORDER [None]
